APPROVED DRUG PRODUCT: AZULFIDINE
Active Ingredient: SULFASALAZINE
Strength: 250MG/5ML
Dosage Form/Route: SUSPENSION;ORAL
Application: N018605 | Product #001
Applicant: PHARMACIA AND UPJOHN CO
Approved: Approved Prior to Jan 1, 1982 | RLD: No | RS: No | Type: DISCN